FAERS Safety Report 4283655-4 (Version None)
Quarter: 2004Q1

REPORT INFORMATION
  Report Type: 
  Country: None (occurrence: None)
  Receive Date: 20040202
  Receipt Date: 20031215
  Transmission Date: 20041129
  Serious: Yes (Other)
  Sender: FDA-Public Use
  Company Number: US-ROCHE-354183

PATIENT
  Age: 44 Year
  Sex: Male
  Weight: 68.9 kg

DRUGS (17)
  1. PEGASYS [Suspect]
     Route: 058
     Dates: start: 20030815
  2. PEGASYS [Suspect]
     Route: 058
     Dates: start: 20031205, end: 20031226
  3. LITHIUM CARBONATE [Concomitant]
     Dosage: DOSE DECREASED TO 600MG BID ON 05 DEC 2003, UNSPECIFIED STARTING DOSE.
  4. SODIUM CHLORIDE [Concomitant]
     Dosage: ROUTE: NASAL.
     Route: 050
  5. ALOH3-MGOH2 [Concomitant]
  6. UNKNOWN DRUG [Concomitant]
     Dosage: DRUG NAME REPORTED AS GG 600.
  7. TRAZODONE HCL [Concomitant]
  8. TUBERSOL [Concomitant]
  9. PSYLLIUM [Concomitant]
     Route: 048
  10. MONTELUKAST SODIUM [Concomitant]
  11. IBUPROFEN [Concomitant]
  12. BUSPIRONE HCL [Concomitant]
  13. LITHIUM CARBONATE [Concomitant]
  14. RIBAVIRIN [Concomitant]
  15. PROPRANOLOL [Concomitant]
  16. ACETAMINOPHEN [Concomitant]
  17. EUCERIN [Concomitant]
     Route: 061

REACTIONS (15)
  - ACTIVITIES OF DAILY LIVING IMPAIRED [None]
  - CHOREA [None]
  - DEPRESSION [None]
  - DISTURBANCE IN ATTENTION [None]
  - FEAR [None]
  - HYPERAESTHESIA [None]
  - IRRITABILITY [None]
  - LOSS OF PROPRIOCEPTION [None]
  - MUSCLE CRAMP [None]
  - MUSCULAR WEAKNESS [None]
  - MYALGIA [None]
  - NEUROMYOPATHY [None]
  - PARAESTHESIA [None]
  - PHOTOPSIA [None]
  - TREMOR [None]
